FAERS Safety Report 22298677 (Version 3)
Quarter: 2023Q2

REPORT INFORMATION
  Report Type: Spontaneous
  Country: CA (occurrence: CA)
  Receive Date: 20230509
  Receipt Date: 20230629
  Transmission Date: 20230721
  Serious: Yes (Hospitalization, Other)
  Sender: FDA-Public Use
  Company Number: CA-PFIZER INC-202200998126

PATIENT
  Age: 79 Year
  Sex: Male

DRUGS (2)
  1. ABRILADA [Suspect]
     Active Substance: ADALIMUMAB-AFZB
     Indication: Hidradenitis
     Dosage: 40 MG (160MG WK 0, 80MG WK 2, 40MG WK 4, THEN WEEKLY X 12 MONTHS)
     Route: 058
     Dates: start: 20220504, end: 2022
  2. ABRILADA [Suspect]
     Active Substance: ADALIMUMAB-AFZB
     Dosage: 160MG WK 0, 80MG WK 2, 40MG WK 4, THEN WEEKLY X 12 MONTHS
     Route: 058
     Dates: start: 20221012, end: 2022

REACTIONS (3)
  - Pneumonia [Unknown]
  - Lesion excision [Unknown]
  - Headache [Recovering/Resolving]

NARRATIVE: CASE EVENT DATE: 20220101
